FAERS Safety Report 14938775 (Version 2)
Quarter: 2018Q2

REPORT INFORMATION
  Report Type: Spontaneous
  Country: US (occurrence: US)
  Receive Date: 20180525
  Receipt Date: 20180612
  Transmission Date: 20180711
  Serious: No
  Sender: FDA-Public Use
  Company Number: US-PFIZER INC-2018214405

PATIENT
  Age: 68 Year
  Sex: Female
  Weight: 113 kg

DRUGS (5)
  1. LETROZOLE. [Concomitant]
     Active Substance: LETROZOLE
     Indication: BREAST CANCER METASTATIC
     Dosage: 2.5 MG, 1X/DAY
     Route: 048
  2. WARFARIN [Concomitant]
     Active Substance: WARFARIN
     Dosage: UNK
  3. IBRANCE [Suspect]
     Active Substance: PALBOCICLIB
     Dosage: 125 MG, CYCLIC (125MG CAPSULE ONCE DAILY BY MOUTH FOR 3 WEEKS AND THEN 1 WEEK OFF)
     Route: 048
  4. IBRANCE [Suspect]
     Active Substance: PALBOCICLIB
     Indication: BREAST CANCER METASTATIC
     Dosage: 125 MG, CYCLIC (21 DAYS THAN 7 DAYS OFF)
     Route: 048
     Dates: start: 2016
  5. XGEVA [Concomitant]
     Active Substance: DENOSUMAB
     Dosage: UNK

REACTIONS (8)
  - Malaise [Unknown]
  - Bone pain [Not Recovered/Not Resolved]
  - Dizziness [Unknown]
  - Neoplasm progression [Unknown]
  - Psychiatric symptom [Not Recovered/Not Resolved]
  - Weight increased [Unknown]
  - Vomiting [Unknown]
  - Fall [Recovered/Resolved]

NARRATIVE: CASE EVENT DATE: 201804
